FAERS Safety Report 8137986-8 (Version None)
Quarter: 2012Q1

REPORT INFORMATION
  Report Type: 
  Country: None (occurrence: None)
  Receive Date: 20120215
  Receipt Date: 20120209
  Transmission Date: 20120608
  Serious: Yes (Hospitalization, Other)
  Sender: FDA-Public Use
  Company Number: US-PFIZER INC-2012036329

PATIENT
  Sex: Female
  Weight: 91.61 kg

DRUGS (3)
  1. COSOPT [Concomitant]
     Indication: GLAUCOMA
     Dosage: UNK, 1X/DAY
  2. ATENOLOL [Concomitant]
     Indication: HYPERTENSION
     Dosage: UNK
  3. XALATAN [Suspect]
     Indication: CATARACT
     Dosage: 1X/DAY
     Route: 047
     Dates: end: 20110801

REACTIONS (3)
  - ARTHRITIS [None]
  - ARTHROPATHY [None]
  - BLOOD PRESSURE INCREASED [None]
